FAERS Safety Report 15211562 (Version 1)
Quarter: 2018Q3

REPORT INFORMATION
  Report Type: Spontaneous
  Country: US (occurrence: US)
  Receive Date: 20180702
  Receipt Date: 20180702
  Transmission Date: 20181010
  Serious: No
  Sender: FDA-Public Use
  Company Number: None

PATIENT
  Age: 33 Year
  Sex: Female

DRUGS (1)
  1. FONDAPARNIX SOL 10/0.8 [Suspect]
     Active Substance: FONDAPARINUX SODIUM
     Dates: start: 20170503, end: 20180702

REACTIONS (1)
  - Sunburn [None]

NARRATIVE: CASE EVENT DATE: 20180630
